FAERS Safety Report 6259626-5 (Version None)
Quarter: 2009Q3

REPORT INFORMATION
  Report Type: 
  Country: None (occurrence: None)
  Receive Date: 20090708
  Receipt Date: 20090629
  Transmission Date: 20100115
  Serious: Yes (Other)
  Sender: FDA-Public Use
  Company Number: CH-JNJFOC-20090609105

PATIENT
  Age: 50 Year
  Sex: Female
  Weight: 120 kg

DRUGS (2)
  1. RISPERDAL [Suspect]
     Indication: SCHIZOAFFECTIVE DISORDER
     Route: 048
  2. METFIN [Concomitant]
     Indication: TYPE 2 DIABETES MELLITUS
     Route: 048

REACTIONS (3)
  - AMENORRHOEA [None]
  - HYPERPROLACTINAEMIA [None]
  - PROLACTINOMA [None]
